FAERS Safety Report 9355304 (Version 1)
Quarter: 2013Q2

REPORT INFORMATION
  Report Type: Spontaneous
  Country: US (occurrence: US)
  Receive Date: 20130619
  Receipt Date: 20130619
  Transmission Date: 20140414
  Serious: No
  Sender: FDA-Public Use
  Company Number: US-US-EMD SERONO, INC.-7032016

PATIENT
  Sex: Female

DRUGS (2)
  1. REBIF [Suspect]
     Indication: MULTIPLE SCLEROSIS
     Route: 058
     Dates: start: 20101029
  2. AMBIEN [Suspect]
     Indication: INSOMNIA

REACTIONS (5)
  - Hallucination [Recovered/Resolved]
  - Insomnia [Recovering/Resolving]
  - Hypertension [Unknown]
  - Injection site pain [Unknown]
  - Pyrexia [Unknown]
